FAERS Safety Report 8110672-6 (Version None)
Quarter: 2012Q1

REPORT INFORMATION
  Report Type: 
  Country: None (occurrence: None)
  Receive Date: 20120203
  Receipt Date: 20120123
  Transmission Date: 20120608
  Serious: Yes (Other)
  Sender: FDA-Public Use
  Company Number: IN-PAR PHARMACEUTICAL, INC-2012SCPR004000

PATIENT

DRUGS (5)
  1. LEVETIRACETAM [Suspect]
     Indication: GRAND MAL CONVULSION
     Dosage: 500 MG, / DAY
     Route: 065
  2. LEVETIRACETAM [Suspect]
     Dosage: 1000 MG, / DAY
     Route: 065
  3. DIVALPROEX SODIUM [Concomitant]
     Dosage: 1000 MG, / DAY
     Route: 065
  4. LEVETIRACETAM [Suspect]
     Dosage: 1500 MG, / DAY
     Route: 065
  5. DIVALPROEX SODIUM [Concomitant]
     Indication: GRAND MAL CONVULSION
     Dosage: 2000 MG, / DAY
     Route: 065

REACTIONS (1)
  - PSYCHOTIC DISORDER [None]
